FAERS Safety Report 5367736-X (Version None)
Quarter: 2007Q2

REPORT INFORMATION
  Report Type: 
  Country: None (occurrence: None)
  Receive Date: 20070622
  Receipt Date: 20070425
  Transmission Date: 20071010
  Serious: No
  Sender: FDA-Public Use
  Company Number: US-ASTRAZENECA-2007UW07899

PATIENT
  Age: 5 Year
  Sex: Male

DRUGS (2)
  1. PULMICORT RESPULES [Suspect]
     Dosage: 0.5 LOT# MT5007 SAMPLES
     Route: 055
     Dates: start: 20070420, end: 20070420
  2. OREPRED [Concomitant]

REACTIONS (2)
  - LETHARGY [None]
  - PSYCHOMOTOR HYPERACTIVITY [None]
